FAERS Safety Report 7448816-1 (Version None)
Quarter: 2011Q2

REPORT INFORMATION
  Report Type: 
  Country: None (occurrence: None)
  Receive Date: 20110429
  Receipt Date: 20100907
  Transmission Date: 20111010
  Serious: No
  Sender: FDA-Public Use
  Company Number: US-ASTRAZENECA-2010SE37859

PATIENT
  Sex: Female

DRUGS (2)
  1. NEXIUM [Suspect]
     Route: 048
     Dates: start: 20100801
  2. NEXIUM [Suspect]
     Route: 048
     Dates: end: 20080101

REACTIONS (2)
  - DRUG DOSE OMISSION [None]
  - BRONCHITIS [None]
